FAERS Safety Report 6192452-4 (Version None)
Quarter: 2009Q2

REPORT INFORMATION
  Report Type: 
  Country: None (occurrence: None)
  Receive Date: 20090513
  Receipt Date: 20090513
  Transmission Date: 20091009
  Serious: Yes (Other)
  Sender: FDA-Public Use
  Company Number: None

PATIENT
  Age: 60 Year
  Sex: Female

DRUGS (7)
  1. ROCEPHIN [Suspect]
     Indication: URINARY TRACT INFECTION
     Dosage: 1 GRAM
     Route: 042
     Dates: start: 20081212
  2. LISINOPRIL [Concomitant]
  3. COZAAR [Concomitant]
  4. LASIX [Concomitant]
  5. ADVAIR DISK [Concomitant]
  6. ASPIRIN [Concomitant]
  7. PROTONIX [Concomitant]

REACTIONS (2)
  - DYSPNOEA [None]
  - PRURITUS [None]
